FAERS Safety Report 6355689-7 (Version None)
Quarter: 2009Q3

REPORT INFORMATION
  Report Type: 
  Country: None (occurrence: None)
  Receive Date: 20090910
  Receipt Date: 20090902
  Transmission Date: 20100115
  Serious: Yes (Hospitalization, Other)
  Sender: FDA-Public Use
  Company Number: 2009AL005808

PATIENT
  Age: 48 Year
  Sex: Male

DRUGS (3)
  1. METFORMIN HYDROCHLORIDE EXTENDED RELEASE [Suspect]
  2. GLIMEPIRIDE [Concomitant]
  3. LIRAGLUTIDE [Concomitant]

REACTIONS (1)
  - RENAL CELL CARCINOMA [None]
